FAERS Safety Report 7946860-9 (Version None)
Quarter: 2011Q4

REPORT INFORMATION
  Report Type: 
  Country: None (occurrence: None)
  Receive Date: 20111129
  Receipt Date: 20111123
  Transmission Date: 20120403
  Serious: Yes (Hospitalization, Other)
  Sender: FDA-Public Use
  Company Number: PHHY2011AU77532

PATIENT
  Sex: Female

DRUGS (1)
  1. GILENYA [Suspect]
     Indication: MULTIPLE SCLEROSIS
     Dosage: 0.5 MG, UNK
     Route: 048
     Dates: start: 20110828

REACTIONS (6)
  - SINUS BRADYCARDIA [None]
  - VISION BLURRED [None]
  - DIZZINESS [None]
  - ARRHYTHMIA [None]
  - SYNCOPE [None]
  - MALAISE [None]
